FAERS Safety Report 5964398-5 (Version None)
Quarter: 2008Q4

REPORT INFORMATION
  Report Type: 
  Country: None (occurrence: None)
  Receive Date: 20081124
  Receipt Date: 20081115
  Transmission Date: 20090506
  Serious: Yes (Death)
  Sender: FDA-Public Use
  Company Number: IN-PFIZER INC-2008096951

PATIENT
  Sex: Male
  Weight: 77 kg

DRUGS (1)
  1. GENOTROPIN [Suspect]
     Indication: PRADER-WILLI SYNDROME
     Route: 058
     Dates: start: 20021204, end: 20080822

REACTIONS (3)
  - DIZZINESS [None]
  - HYPERHIDROSIS [None]
  - SUDDEN DEATH [None]
